FAERS Safety Report 19853534 (Version 1)
Quarter: 2021Q3

REPORT INFORMATION
  Report Type: Spontaneous
  Country: HK (occurrence: HK)
  Receive Date: 20210919
  Receipt Date: 20210919
  Transmission Date: 20211014
  Serious: Yes (Death, Other)
  Sender: FDA-Public Use
  Company Number: HK-ORGANON-O2109HKG000815

PATIENT
  Age: 52 Year
  Sex: Male

DRUGS (12)
  1. MONTELUKAST SODIUM. [Suspect]
     Active Substance: MONTELUKAST SODIUM
     Dosage: UNK
     Route: 048
  2. ORLISTAT. [Suspect]
     Active Substance: ORLISTAT
     Dosage: UNK
  3. DICLOFENAC [Suspect]
     Active Substance: DICLOFENAC
     Dosage: UNK
  4. ZOLPIDEM [Suspect]
     Active Substance: ZOLPIDEM TARTRATE
     Dosage: UNK
  5. MELOXICAM. [Suspect]
     Active Substance: MELOXICAM
     Dosage: UNK
  6. OFLOXACIN. [Suspect]
     Active Substance: OFLOXACIN
     Dosage: UNK
  7. PREGABALIN. [Suspect]
     Active Substance: PREGABALIN
     Dosage: UNK
  8. CARFENTANIL (11C) [Suspect]
     Active Substance: CARFENTANIL
     Dosage: UNK
  9. DESLORATADINE. [Suspect]
     Active Substance: DESLORATADINE
     Dosage: UNK
  10. OLOPATADINE HYDROCHLORIDE. [Suspect]
     Active Substance: OLOPATADINE HYDROCHLORIDE
     Dosage: UNK
  11. ORNIDAZOLE [Suspect]
     Active Substance: ORNIDAZOLE
     Dosage: UNK
  12. NAPROXEN. [Suspect]
     Active Substance: NAPROXEN
     Dosage: UNK

REACTIONS (1)
  - Drug abuse [Fatal]
